FAERS Safety Report 7983736-5 (Version None)
Quarter: 2011Q4

REPORT INFORMATION
  Report Type: 
  Country: None (occurrence: None)
  Receive Date: 20111215
  Receipt Date: 20111123
  Transmission Date: 20120403
  Serious: Yes (Other)
  Sender: FDA-Public Use
  Company Number: BR-ROCHE-GNE316596

PATIENT
  Age: 12 Year
  Sex: Female

DRUGS (3)
  1. LEVOTHYROXINE SODIUM [Concomitant]
  2. HYDROCORTISONE ACETATE [Concomitant]
  3. SOMATROPIN [Suspect]
     Indication: BODY HEIGHT BELOW NORMAL
     Dosage: 0.1 IU/KG PER DAY.
     Route: 065

REACTIONS (2)
  - TYPE III IMMUNE COMPLEX MEDIATED REACTION [None]
  - TREATMENT FAILURE [None]
